FAERS Safety Report 5457333-X (Version None)
Quarter: 2007Q3

REPORT INFORMATION
  Report Type: 
  Country: None (occurrence: None)
  Receive Date: 20070918
  Receipt Date: 20070209
  Transmission Date: 20080115
  Serious: No
  Sender: FDA-Public Use
  Company Number: US-ASTRAZENECA-2007UW02708

PATIENT
  Sex: Male

DRUGS (4)
  1. SEROQUEL [Suspect]
     Indication: INSOMNIA
     Route: 048
     Dates: start: 20040101
  2. LAMICTAL [Concomitant]
  3. GEODON [Concomitant]
  4. COGENTIN [Concomitant]

REACTIONS (2)
  - RETCHING [None]
  - VOMITING [None]
